FAERS Safety Report 4816382-2 (Version None)
Quarter: 2005Q4

REPORT INFORMATION
  Report Type: 
  Country: None (occurrence: None)
  Receive Date: 20051028
  Receipt Date: 20051020
  Transmission Date: 20060501
  Serious: Yes (Congenital Anomaly)
  Sender: FDA-Public Use
  Company Number: 2004-113007-NL

PATIENT

DRUGS (4)
  1. MIRTAZAPINE [Suspect]
     Dosage: DF ORAL
     Route: 048
     Dates: start: 20030810, end: 20031010
  2. CLOMIPRAMINE HCL [Suspect]
     Dosage: 25 MG
     Route: 048
     Dates: start: 20030810
  3. CLORAZEPATE DIPOTASSIUM [Suspect]
     Dosage: 10 MG
     Route: 048
     Dates: start: 20030901, end: 20030916
  4. LORAZEPAM [Suspect]
     Dosage: DF ORAL
     Route: 048
     Dates: start: 20030810, end: 20030930

REACTIONS (3)
  - DRUG EXPOSURE DURING PREGNANCY [None]
  - FALLOT'S TETRALOGY [None]
  - PREMATURE BABY [None]
